FAERS Safety Report 9084377 (Version 1)
Quarter: 2013Q1

REPORT INFORMATION
  Report Type: Report from Study
  Country: US (occurrence: US)
  Receive Date: 20130131
  Receipt Date: 20130131
  Transmission Date: 20140127
  Serious: No
  Sender: FDA-Public Use
  Company Number: US-ABBOTT-12P-163-0976801-00

PATIENT
  Age: 55 Year
  Sex: Female

DRUGS (7)
  1. HUMIRA [Suspect]
     Indication: PSORIASIS
     Dates: start: 20120830
  2. HUMIRA [Suspect]
     Indication: HIDRADENITIS
     Route: 058
     Dates: start: 20120906
  3. ESTRADIOL [Concomitant]
     Indication: HORMONE REPLACEMENT THERAPY
  4. FLUOXETINE [Concomitant]
     Indication: PRODUCT USED FOR UNKNOWN INDICATION
  5. CLONAZEPAM [Concomitant]
     Indication: PRODUCT USED FOR UNKNOWN INDICATION
  6. CLOBETASOL PROPRIONATE [Concomitant]
     Indication: PRODUCT USED FOR UNKNOWN INDICATION
  7. TOPICAL MIXTURE OLIVE OIL, ALOE, TUMERIC, AND COMFEY [Concomitant]
     Indication: PRODUCT USED FOR UNKNOWN INDICATION

REACTIONS (8)
  - Feeling hot [Recovering/Resolving]
  - Urticaria [Not Recovered/Not Resolved]
  - Paraesthesia [Not Recovered/Not Resolved]
  - Nausea [Recovering/Resolving]
  - Hidradenitis [Unknown]
  - Skin exfoliation [Unknown]
  - Blood cholesterol increased [Unknown]
  - Burning sensation [Unknown]
